FAERS Safety Report 8924806 (Version 2)
Quarter: 2013Q1

REPORT INFORMATION
  Report Type: Spontaneous
  Country: IT (occurrence: IT)
  Receive Date: 20121126
  Receipt Date: 20130225
  Transmission Date: 20140127
  Serious: Yes (Hospitalization)
  Sender: FDA-Public Use
  Company Number: IT-PFIZER INC-2012293785

PATIENT
  Age: 81 Year
  Sex: Female

DRUGS (5)
  1. TORVAST [Suspect]
     Indication: HYPERLIPIDAEMIA
     Dosage: 20 MG, 1X/DAY
     Route: 048
     Dates: start: 20101120, end: 20121023
  2. EUTIROX [Concomitant]
     Dosage: 50 UG, UNK
     Route: 048
  3. CARDICOR [Concomitant]
     Dosage: 1.25 MG, UNK
     Route: 048
  4. PRITOR [Concomitant]
     Dosage: 80 MG, UNK
     Route: 048
  5. LANOXIN [Concomitant]
     Dosage: 0.125 MG, UNK
     Route: 048

REACTIONS (3)
  - Gamma-glutamyltransferase increased [Recovering/Resolving]
  - Jaundice [Recovering/Resolving]
  - Hypertransaminasaemia [Recovering/Resolving]
